FAERS Safety Report 21693164 (Version 6)
Quarter: 2023Q1

REPORT INFORMATION
  Report Type: Spontaneous
  Country: US (occurrence: US)
  Receive Date: 20221207
  Receipt Date: 20230207
  Transmission Date: 20230418
  Serious: No
  Sender: FDA-Public Use
  Company Number: US-PFIZER INC-202201341108

PATIENT
  Age: 54 Year
  Sex: Female
  Weight: 66.68 kg

DRUGS (3)
  1. NIVESTYM [Suspect]
     Active Substance: FILGRASTIM-AAFI
     Indication: White blood cell count decreased
     Dosage: UNK
  2. MYFORTIC [Concomitant]
     Active Substance: MYCOPHENOLATE SODIUM
     Indication: Immunosuppressant drug therapy
     Dosage: 180 MG, 2X/DAY
     Dates: start: 20211117
  3. TACROLIMUS [Concomitant]
     Active Substance: TACROLIMUS
     Indication: Immunosuppressant drug therapy
     Dosage: 3 MG, 2X/DAY
     Dates: start: 20211117

REACTIONS (4)
  - Circumstance or information capable of leading to device use error [Unknown]
  - Poor quality device used [Recovered/Resolved]
  - Device breakage [Recovered/Resolved]
  - Malaise [Unknown]

NARRATIVE: CASE EVENT DATE: 20221201
